FAERS Safety Report 14137224 (Version 1)
Quarter: 2017Q4

REPORT INFORMATION
  Report Type: Spontaneous
  Country: US (occurrence: US)
  Receive Date: 20171027
  Receipt Date: 20171027
  Transmission Date: 20180321
  Serious: Yes (Death)
  Sender: FDA-Public Use
  Company Number: US-JNJFOC-20171028553

PATIENT
  Age: 19 Year
  Sex: Female

DRUGS (1)
  1. TOPAMAX [Suspect]
     Active Substance: TOPIRAMATE
     Indication: PRODUCT USED FOR UNKNOWN INDICATION
     Route: 065

REACTIONS (5)
  - Alcohol poisoning [Fatal]
  - Mucosal erosion [Unknown]
  - Skin abrasion [Unknown]
  - Hypothermia [Fatal]
  - Intentional product misuse [Unknown]

NARRATIVE: CASE EVENT DATE: 20170910
